FAERS Safety Report 9912149 (Version 1)
Quarter: 2014Q1

REPORT INFORMATION
  Report Type: Spontaneous
  Country: US (occurrence: US)
  Receive Date: 20140220
  Receipt Date: 20140220
  Transmission Date: 20141002
  Serious: Yes (Death)
  Sender: FDA-Public Use
  Company Number: US-BRISTOL-MYERS SQUIBB COMPANY-20167052

PATIENT
  Sex: Male

DRUGS (4)
  1. BYETTA [Suspect]
     Dates: start: 201001, end: 201211
  2. JANUVIA [Suspect]
     Dates: start: 201001, end: 201211
  3. JANUMET [Suspect]
     Dates: start: 201001, end: 201211
  4. VICTOZA [Suspect]
     Dates: start: 201001, end: 201211

REACTIONS (1)
  - Pancreatic carcinoma [Fatal]
